FAERS Safety Report 13916762 (Version 2)
Quarter: 2017Q3

REPORT INFORMATION
  Report Type: Spontaneous
  Country: ES (occurrence: ES)
  Receive Date: 20170829
  Receipt Date: 20170905
  Transmission Date: 20171127
  Serious: Yes (Hospitalization, Disabling)
  Sender: FDA-Public Use
  Company Number: ES-ASTRAZENECA-2017SE86667

PATIENT
  Age: 43 Year
  Sex: Male
  Weight: 93 kg

DRUGS (3)
  1. CRESTOR [Concomitant]
     Active Substance: ROSUVASTATIN CALCIUM
     Route: 048
     Dates: start: 20170709
  2. BRILIQUE [Suspect]
     Active Substance: TICAGRELOR
     Route: 048
     Dates: start: 20170809
  3. ADIRO [Concomitant]
     Active Substance: ASPIRIN
     Route: 048
     Dates: start: 20170709

REACTIONS (3)
  - Hypotension [Unknown]
  - Vertigo [Not Recovered/Not Resolved]
  - Dizziness [Not Recovered/Not Resolved]

NARRATIVE: CASE EVENT DATE: 20170809
